FAERS Safety Report 18578835 (Version 1)
Quarter: 2020Q4

REPORT INFORMATION
  Report Type: Other
  Country: US (occurrence: US)
  Receive Date: 20201204
  Receipt Date: 20201204
  Transmission Date: 20210114
  Serious: No
  Sender: FDA-Public Use
  Company Number: US-ROCHE-2725064

PATIENT
  Age: 34 Year
  Sex: Female

DRUGS (1)
  1. OCREVUS [Suspect]
     Active Substance: OCRELIZUMAB
     Indication: RELAPSING MULTIPLE SCLEROSIS
     Dosage: MOST RECENT INFUSION GIVEN ON 17/OCT/2018, 03/APR/2019, 16/OCT/2019, 20/MAY/2020
     Route: 065
     Dates: start: 20181003

REACTIONS (5)
  - Pyrexia [Not Recovered/Not Resolved]
  - General physical health deterioration [Unknown]
  - Hormone level abnormal [Recovering/Resolving]
  - Illness [Unknown]
  - COVID-19 [Unknown]

NARRATIVE: CASE EVENT DATE: 202005
